FAERS Safety Report 4746536-5 (Version None)
Quarter: 2005Q3

REPORT INFORMATION
  Report Type: 
  Country: None (occurrence: None)
  Receive Date: 20050815
  Receipt Date: 20050803
  Transmission Date: 20060218
  Serious: Yes (Life-Threatening, Other)
  Sender: FDA-Public Use
  Company Number: HQWYE67104AUG05

PATIENT
  Age: 67 Year
  Sex: Male

DRUGS (1)
  1. AMIODARONE [Suspect]
     Indication: ATRIAL FIBRILLATION
     Dosage: 300 MG IN DEXTROSE 250 CC IN 60 MINUTES, INTRAVENOUS
     Route: 042
     Dates: start: 20050620, end: 20050620

REACTIONS (3)
  - BRONCHOSPASM [None]
  - RASH GENERALISED [None]
  - UNEVALUABLE EVENT [None]
